FAERS Safety Report 7231910-8 (Version None)
Quarter: 2011Q1

REPORT INFORMATION
  Report Type: 
  Country: None (occurrence: None)
  Receive Date: 20110118
  Receipt Date: 20110103
  Transmission Date: 20110831
  Serious: Yes (Life-Threatening, Hospitalization)
  Sender: FDA-Public Use
  Company Number: RO-ELI_LILLY_AND_COMPANY-RO201009007444

PATIENT
  Age: 45 Year
  Sex: Male

DRUGS (2)
  1. ZYPREXA [Suspect]
     Dosage: 800 MG, UNK
  2. ZYPREXA [Suspect]
     Route: 065

REACTIONS (7)
  - ANXIETY [None]
  - CHOREA [None]
  - INSOMNIA [None]
  - DYSPNOEA [None]
  - COMA [None]
  - OVERDOSE [None]
  - AKATHISIA [None]
